FAERS Safety Report 10787632 (Version 1)
Quarter: 2015Q1

REPORT INFORMATION
  Report Type: Spontaneous
  Country: US (occurrence: US)
  Receive Date: 20150212
  Receipt Date: 20150212
  Transmission Date: 20150721
  Serious: No
  Sender: FDA-Public Use
  Company Number: US-009507513-1502USA003412

PATIENT
  Age: 8 Year
  Sex: Female

DRUGS (1)
  1. STERILE DILUENT [Suspect]
     Active Substance: WATER
     Indication: SKIN TEST
     Dosage: 0.3 ML, ONCE
     Route: 023
     Dates: start: 20150206, end: 20150206

REACTIONS (4)
  - Throat tightness [Recovered/Resolved]
  - Dyspnoea [Recovered/Resolved]
  - Rash macular [Recovered/Resolved]
  - Expired product administered [Unknown]

NARRATIVE: CASE EVENT DATE: 20150206
